FAERS Safety Report 4947079-6 (Version None)
Quarter: 2006Q1

REPORT INFORMATION
  Report Type: 
  Country: None (occurrence: None)
  Receive Date: 20060317
  Receipt Date: 20060314
  Transmission Date: 20060701
  Serious: Yes (Death, Life-Threatening)
  Sender: FDA-Public Use
  Company Number: 2006CG00482

PATIENT
  Age: 60 Year
  Sex: Female

DRUGS (4)
  1. DIPRIVAN [Suspect]
     Indication: GENERAL ANAESTHESIA
     Route: 042
     Dates: start: 20060216, end: 20060216
  2. CELOCURINE [Suspect]
     Indication: GENERAL ANAESTHESIA
     Route: 042
     Dates: start: 20060216, end: 20060216
  3. NIMBEX [Suspect]
     Indication: GENERAL ANAESTHESIA
     Route: 042
     Dates: start: 20060216, end: 20060216
  4. BIPRETERAX [Concomitant]
     Indication: HYPERTENSION
     Dates: start: 19880101

REACTIONS (1)
  - ANAPHYLACTIC SHOCK [None]
